FAERS Safety Report 9726533 (Version 1)
Quarter: 2013Q4

REPORT INFORMATION
  Report Type: Spontaneous
  Country: US (occurrence: None)
  Receive Date: 20131202
  Receipt Date: 20131202
  Transmission Date: 20140711
  Serious: Yes (Hospitalization)
  Sender: FDA-Public Use
  Company Number: None

PATIENT
  Age: 78 Year
  Sex: Male
  Weight: 77.8 kg

DRUGS (24)
  1. BEVACIZUMAB [Suspect]
  2. ADVAIR DISKUS AEROSOL POWDER [Concomitant]
  3. ASPIRIN [Concomitant]
  4. COREG [Concomitant]
  5. ENSURE [Concomitant]
  6. FUROSEMIDE 40MG [Concomitant]
  7. FUROSEMIDE 80MG [Concomitant]
  8. GLIPIZIDE [Concomitant]
  9. LEVOTHYROXINE SODIUM [Concomitant]
  10. LEXAPRO [Concomitant]
  11. LIPITOR [Concomitant]
  12. LISINOPRIL [Concomitant]
  13. LOFIBRA [Concomitant]
  14. MULTIVITAMINS [Concomitant]
  15. NORVASC [Concomitant]
  16. OMEPRAZOLE [Concomitant]
  17. OXYCODONE HCL [Concomitant]
  18. OXYCONTIN [Concomitant]
  19. PLAVIX [Concomitant]
  20. ROCALTROL [Concomitant]
  21. TRICOR [Concomitant]
  22. VITAMIN D [Concomitant]
  23. ZOSYN [Concomitant]
  24. AZITHROMYCIN [Concomitant]

REACTIONS (6)
  - Dyspnoea [None]
  - Dizziness [None]
  - Mental status changes [None]
  - Hypotension [None]
  - Confusional state [None]
  - Renal impairment [None]
